FAERS Safety Report 6746042-2 (Version None)
Quarter: 2010Q2

REPORT INFORMATION
  Report Type: 
  Country: None (occurrence: None)
  Receive Date: 20100526
  Receipt Date: 20100511
  Transmission Date: 20101027
  Serious: Yes (Other)
  Sender: FDA-Public Use
  Company Number: BCN-AS-2010-RR-143

PATIENT
  Age: 45 Year
  Sex: Male

DRUGS (1)
  1. SIMVASTATIN [Suspect]
     Indication: HYPERCHOLESTEROLAEMIA
     Dosage: 20MG
     Route: 048

REACTIONS (1)
  - BLOOD BILIRUBIN INCREASED [None]
